FAERS Safety Report 12116715 (Version 2)
Quarter: 2016Q2

REPORT INFORMATION
  Report Type: Spontaneous
  Country: BR (occurrence: BR)
  Receive Date: 20160225
  Receipt Date: 20160404
  Transmission Date: 20160815
  Serious: Yes (Hospitalization, Other)
  Sender: FDA-Public Use
  Company Number: PHHY2016BR024206

PATIENT
  Age: 54 Year
  Sex: Female
  Weight: 55 kg

DRUGS (2)
  1. SIMVASTATIN. [Suspect]
     Active Substance: SIMVASTATIN
     Indication: BLOOD CHOLESTEROL INCREASED
     Dosage: 20 MG, UNK
     Route: 065
     Dates: start: 20160203
  2. SIMVASTATIN. [Suspect]
     Active Substance: SIMVASTATIN
     Dosage: 20 MG, UNK
     Route: 065
     Dates: start: 20160216

REACTIONS (5)
  - Vomiting [Recovered/Resolved]
  - Abdominal pain [Recovered/Resolved]
  - Feeling abnormal [Recovered/Resolved]
  - Blood pressure decreased [Recovered/Resolved]
  - Confusional state [Recovered/Resolved]
